FAERS Safety Report 20535644 (Version 1)
Quarter: 2022Q1

REPORT INFORMATION
  Report Type: Spontaneous
  Country: FR (occurrence: FR)
  Receive Date: 20220302
  Receipt Date: 20220302
  Transmission Date: 20220423
  Serious: Yes (Other)
  Sender: FDA-Public Use
  Company Number: FR-JNJFOC-20211032211

PATIENT
  Sex: Male

DRUGS (2)
  1. SIMPONI [Interacting]
     Active Substance: GOLIMUMAB
     Indication: Product used for unknown indication
     Route: 058
  2. XARELTO [Interacting]
     Active Substance: RIVAROXABAN
     Indication: Product used for unknown indication
     Route: 065

REACTIONS (2)
  - Thrombosis [Unknown]
  - Drug interaction [Unknown]
